FAERS Safety Report 5929582-5 (Version None)
Quarter: 2008Q4

REPORT INFORMATION
  Report Type: 
  Country: None (occurrence: None)
  Receive Date: 20081024
  Receipt Date: 20081017
  Transmission Date: 20090506
  Serious: Yes (Hospitalization)
  Sender: FDA-Public Use
  Company Number: US-MERCK-0803USA04539

PATIENT
  Age: 76 Year
  Sex: Female
  Weight: 46 kg

DRUGS (7)
  1. FOSAMAX [Suspect]
     Indication: OSTEOPOROSIS
     Route: 048
     Dates: start: 20011001, end: 20060501
  2. FOSAMAX [Suspect]
     Route: 048
     Dates: start: 20000706, end: 20011001
  3. [THERAPY UNSPECIFIED] [Concomitant]
     Indication: HORMONE THERAPY
     Route: 065
     Dates: start: 19640101
  4. [THERAPY UNSPECIFIED] [Concomitant]
     Indication: HYPERTENSION
     Route: 065
     Dates: start: 19950101
  5. [THERAPY UNSPECIFIED] [Concomitant]
     Indication: BLOOD CHOLESTEROL INCREASED
     Route: 065
     Dates: start: 19990101
  6. AMITRIPTYLINE HCL [Suspect]
     Route: 065
     Dates: end: 20050630
  7. NEURONTIN [Suspect]
     Route: 065
     Dates: end: 20050630

REACTIONS (31)
  - ABDOMINAL PAIN LOWER [None]
  - ALCOHOL USE [None]
  - AORTIC ANEURYSM [None]
  - ATRIAL FIBRILLATION [None]
  - BODY MASS INDEX DECREASED [None]
  - BONE DISORDER [None]
  - CARDIAC FAILURE CONGESTIVE [None]
  - CONFUSIONAL STATE [None]
  - CONSTIPATION [None]
  - DELIRIUM [None]
  - DEMENTIA [None]
  - DENTAL CARIES [None]
  - DRUG HYPERSENSITIVITY [None]
  - EJECTION FRACTION DECREASED [None]
  - FISTULA [None]
  - FUNCTIONAL RESIDUAL CAPACITY DECREASED [None]
  - HIP FRACTURE [None]
  - HYPOCALCAEMIA [None]
  - HYPOKALAEMIA [None]
  - INSOMNIA [None]
  - JOINT SWELLING [None]
  - NEUROPATHY PERIPHERAL [None]
  - ORAL PAIN [None]
  - ORAL TORUS [None]
  - ORTHOPNOEA [None]
  - OSTEOARTHRITIS [None]
  - PERIPHERAL VASCULAR DISORDER [None]
  - POSTMENOPAUSE [None]
  - RESORPTION BONE INCREASED [None]
  - TEMPOROMANDIBULAR JOINT SYNDROME [None]
  - TOOTH FRACTURE [None]
